FAERS Safety Report 23686333 (Version 1)
Quarter: 2024Q1

REPORT INFORMATION
  Report Type: Spontaneous
  Country: US (occurrence: US)
  Receive Date: 20240329
  Receipt Date: 20240329
  Transmission Date: 20240409
  Serious: Yes (Other)
  Sender: FDA-Public Use
  Company Number: US-AJANTA-2024AJA00054

PATIENT
  Sex: Female
  Weight: 175 kg

DRUGS (1)
  1. DULOXETINE [Suspect]
     Active Substance: DULOXETINE
     Indication: Depression
     Route: 048
     Dates: start: 20240303, end: 20240309

REACTIONS (7)
  - Suicidal ideation [Unknown]
  - Dizziness [Unknown]
  - Nausea [Unknown]
  - Electric shock sensation [Unknown]
  - Depression [Unknown]
  - Drug ineffective [Unknown]
  - Product substitution issue [Unknown]

NARRATIVE: CASE EVENT DATE: 20240301
